FAERS Safety Report 13174794 (Version 1)
Quarter: 2017Q1

REPORT INFORMATION
  Report Type: Spontaneous
  Country: US (occurrence: US)
  Receive Date: 20170131
  Receipt Date: 20170131
  Transmission Date: 20170428
  Serious: Yes (Death)
  Sender: FDA-Public Use
  Company Number: None

PATIENT
  Age: 58 Year
  Sex: Male

DRUGS (12)
  1. ORTHOVISC [Concomitant]
     Active Substance: HYALURONIC ACID
  2. ALLOPURINOL. [Concomitant]
     Active Substance: ALLOPURINOL
  3. OMEPRAZOLE. [Concomitant]
     Active Substance: OMEPRAZOLE
  4. SULFASALAZINE DELAYED-RELEASE [Concomitant]
     Active Substance: SULFASALAZINE
  5. OXYCODONE [Concomitant]
     Active Substance: OXYCODONE
  6. SIMVAST [Concomitant]
  7. HYDROXYZ [Concomitant]
     Active Substance: HYDROXYZINE HYDROCHLORIDE
  8. AFINITOR [Suspect]
     Active Substance: EVEROLIMUS
     Route: 048
     Dates: start: 20161101
  9. GLIMEPIRIDE. [Concomitant]
     Active Substance: GLIMEPIRIDE
  10. AMARYL [Concomitant]
     Active Substance: GLIMEPIRIDE
  11. FLOMAX [Concomitant]
     Active Substance: TAMSULOSIN HYDROCHLORIDE
  12. TRADJENTA [Concomitant]
     Active Substance: LINAGLIPTIN

REACTIONS (1)
  - Death [None]

NARRATIVE: CASE EVENT DATE: 201601
